FAERS Safety Report 5676184-4 (Version None)
Quarter: 2008Q1

REPORT INFORMATION
  Report Type: 
  Country: None (occurrence: None)
  Receive Date: 20080321
  Receipt Date: 20080313
  Transmission Date: 20080703
  Serious: Yes (Hospitalization, Other)
  Sender: FDA-Public Use
  Company Number: JP-BAYER-JP-2007-043344

PATIENT
  Age: 47 Year
  Sex: Male

DRUGS (4)
  1. FLUDARA [Suspect]
     Indication: FOLLICLE CENTRE LYMPHOMA, FOLLICULAR GRADE I, II, III
     Dosage: TOTAL DAILY DOSE: 70 MG  UNIT DOSE: 10 MG
     Route: 048
     Dates: start: 20071011
  2. FLUDARA [Suspect]
     Dosage: TOTAL DAILY DOSE: 70 MG  UNIT DOSE: 10 MG
     Route: 048
     Dates: start: 20071108
  3. FLUDARA [Suspect]
     Dosage: TOTAL DAILY DOSE: 70 MG  UNIT DOSE: 10 MG
     Route: 048
     Dates: start: 20071203, end: 20071208
  4. FLUDARA [Suspect]
     Dosage: TOTAL DAILY DOSE: 70 MG  UNIT DOSE: 10 MG
     Route: 048
     Dates: start: 20080103, end: 20080107

REACTIONS (3)
  - HAEMOGLOBIN DECREASED [None]
  - PLATELET COUNT DECREASED [None]
  - WHITE BLOOD CELL COUNT DECREASED [None]
